FAERS Safety Report 8472203-0 (Version None)
Quarter: 2012Q2

REPORT INFORMATION
  Report Type: 
  Country: None (occurrence: None)
  Receive Date: 20120627
  Receipt Date: 20120619
  Transmission Date: 20120825
  Serious: Yes (Hospitalization)
  Sender: FDA-Public Use
  Company Number: US-JNJFOC-20120610806

PATIENT
  Age: 31 Year
  Sex: Female
  Weight: 106.6 kg

DRUGS (3)
  1. EXTRA STRENGTH TYLENOL [Suspect]
     Indication: PAIN
     Dosage: 2 GELCAPS EVERY 6-12 HOURS
     Route: 048
     Dates: start: 20090201
  2. EXTRA STRENGTH TYLENOL [Suspect]
     Indication: MIGRAINE
     Dosage: 2 GELCAPS EVERY 6-12 HOURS
     Route: 048
     Dates: start: 20090201
  3. MULTI-VITAMINS [Concomitant]
     Indication: VITAMIN SUPPLEMENTATION
     Dosage: FOR 9 MONTHS
     Route: 065

REACTIONS (2)
  - DEEP VEIN THROMBOSIS [None]
  - MATERNAL EXPOSURE DURING PREGNANCY [None]
